FAERS Safety Report 4947973-6 (Version None)
Quarter: 2006Q1

REPORT INFORMATION
  Report Type: 
  Country: None (occurrence: None)
  Receive Date: 20060320
  Receipt Date: 20050420
  Transmission Date: 20060701
  Serious: Yes (Hospitalization)
  Sender: FDA-Public Use
  Company Number: US-MERCK-0504USA03957

PATIENT
  Age: 73 Year
  Sex: Male
  Weight: 109 kg

DRUGS (2)
  1. VIOXX [Suspect]
     Indication: ARTHRALGIA
     Route: 048
     Dates: start: 20020617, end: 20040401
  2. ASPIRIN [Concomitant]
     Route: 065

REACTIONS (7)
  - CARDIOVASCULAR DISORDER [None]
  - CARPAL TUNNEL SYNDROME [None]
  - HEART RATE IRREGULAR [None]
  - HERNIA [None]
  - PERIPHERAL SENSORY NEUROPATHY [None]
  - PNEUMONIA [None]
  - TRANSIENT ISCHAEMIC ATTACK [None]
